FAERS Safety Report 7676449-0 (Version None)
Quarter: 2011Q3

REPORT INFORMATION
  Report Type: 
  Country: None (occurrence: None)
  Receive Date: 20110809
  Receipt Date: 20110809
  Transmission Date: 20111222
  Serious: Yes (Life-Threatening)
  Sender: FDA-Public Use
  Company Number: None

PATIENT
  Sex: Female
  Weight: 47.6277 kg

DRUGS (1)
  1. PROGRAF [Suspect]
     Dosage: 0.5 MG BID ORAL
     Route: 048

REACTIONS (2)
  - DRUG LEVEL CHANGED [None]
  - TREMOR [None]
